FAERS Safety Report 7213662-0 (Version None)
Quarter: 2011Q1

REPORT INFORMATION
  Report Type: 
  Country: None (occurrence: None)
  Receive Date: 20110106
  Receipt Date: 20101228
  Transmission Date: 20110831
  Serious: Yes (Other)
  Sender: FDA-Public Use
  Company Number: US-JNJCH-2011000112

PATIENT
  Age: 65 Year
  Sex: Male
  Weight: 86.2 kg

DRUGS (1)
  1. LUBRIDERM SKIN NOURISHING SHEA + COCOA BUTTER [Suspect]
     Indication: OFF LABEL USE
     Dosage: TEXT:^JUST A LITTLE BIT^ ONCE
     Route: 061
     Dates: start: 20101207, end: 20101207

REACTIONS (4)
  - ASTHMA [None]
  - PRODUCT QUALITY ISSUE [None]
  - THERAPEUTIC RESPONSE UNEXPECTED [None]
  - OFF LABEL USE [None]
